FAERS Safety Report 12944017 (Version 1)
Quarter: 2016Q4

REPORT INFORMATION
  Report Type: Spontaneous
  Country: US (occurrence: US)
  Receive Date: 20161115
  Receipt Date: 20161115
  Transmission Date: 20170207
  Serious: No
  Sender: FDA-Public Use
  Company Number: US-ROCHE-1830447

PATIENT
  Age: 11 Year
  Sex: Male

DRUGS (4)
  1. ETOPOSIDE. [Suspect]
     Active Substance: ETOPOSIDE
     Indication: EPENDYMOMA MALIGNANT
     Route: 048
  2. TRASTUZUMAB [Suspect]
     Active Substance: TRASTUZUMAB
     Indication: EPENDYMOMA MALIGNANT
     Dosage: EVERY 21 DAYS.
     Route: 042
  3. ETOPOSIDE. [Suspect]
     Active Substance: ETOPOSIDE
     Indication: EPENDYMOMA MALIGNANT
     Route: 050
  4. TRASTUZUMAB [Suspect]
     Active Substance: TRASTUZUMAB
     Indication: EPENDYMOMA MALIGNANT
     Route: 050

REACTIONS (1)
  - Leukopenia [Unknown]
